FAERS Safety Report 14956872 (Version 8)
Quarter: 2024Q2

REPORT INFORMATION
  Report Type: Spontaneous
  Country: GR (occurrence: GR)
  Receive Date: 20180531
  Receipt Date: 20240417
  Transmission Date: 20240716
  Serious: Yes (Death, Hospitalization, Other)
  Sender: FDA-Public Use
  Company Number: PHHY2018GR008537

PATIENT
  Age: 76 Year
  Sex: Female

DRUGS (6)
  1. DICLOFENAC [Suspect]
     Active Substance: DICLOFENAC
     Indication: Product used for unknown indication
     Dosage: 50 MG, BID
     Route: 065
  2. DICLOFENAC [Suspect]
     Active Substance: DICLOFENAC
     Indication: Musculoskeletal pain
     Dosage: 50 MG, BID
     Route: 048
  3. QUINAPRIL [Concomitant]
     Active Substance: QUINAPRIL
     Indication: Hypertension
     Route: 065
  4. QUINAPRIL [Concomitant]
     Active Substance: QUINAPRIL
     Indication: Hypertension
     Dosage: UNDER TREATMENT WITH QUINAPRIL FOR FIFTEEN YEARS
     Route: 065
  5. QUINAPRIL [Concomitant]
     Active Substance: QUINAPRIL
     Dosage: UNK
     Route: 065
  6. QUINAPRIL [Concomitant]
     Active Substance: QUINAPRIL
     Dosage: UNK
     Route: 065

REACTIONS (11)
  - Hepatic encephalopathy [Fatal]
  - Upper gastrointestinal haemorrhage [Fatal]
  - Jaundice [Unknown]
  - Abdominal pain [Fatal]
  - Nausea [Unknown]
  - Vomiting [Unknown]
  - Back pain [Fatal]
  - Hepatitis [Fatal]
  - Hepatosplenomegaly [Unknown]
  - Respiratory alkalosis [Unknown]
  - Autoimmune hepatitis [Fatal]
